FAERS Safety Report 6095410-3 (Version None)
Quarter: 2009Q1

REPORT INFORMATION
  Report Type: 
  Country: None (occurrence: None)
  Receive Date: 20090227
  Receipt Date: 20080326
  Transmission Date: 20090719
  Serious: No
  Sender: FDA-Public Use
  Company Number: A0717615A

PATIENT
  Age: 64 Year
  Sex: Female

DRUGS (3)
  1. LAMICTAL [Suspect]
     Indication: BIPOLAR DISORDER
     Dosage: 300MG PER DAY
     Route: 048
     Dates: start: 20040101
  2. CELEXA [Concomitant]
  3. SYNTHROID [Concomitant]

REACTIONS (2)
  - ALTERED VISUAL DEPTH PERCEPTION [None]
  - FALL [None]
